APPROVED DRUG PRODUCT: PROGESTERONE
Active Ingredient: PROGESTERONE
Strength: 50MG/ML
Dosage Form/Route: INJECTABLE;INJECTION
Application: A075906 | Product #001 | TE Code: AO
Applicant: FRESENIUS KABI USA LLC
Approved: Apr 25, 2001 | RLD: No | RS: No | Type: RX